FAERS Safety Report 8207022-3 (Version None)
Quarter: 2012Q1

REPORT INFORMATION
  Report Type: 
  Country: None (occurrence: None)
  Receive Date: 20120312
  Receipt Date: 20111028
  Transmission Date: 20120608
  Serious: Yes (Death)
  Sender: FDA-Public Use
  Company Number: CN-AGG-10-2011-0177

PATIENT
  Age: 79 Year
  Sex: Male

DRUGS (2)
  1. AGGRASTAT [Suspect]
     Indication: ACUTE MYOCARDIAL INFARCTION
     Dosage: INTRAVENOUS
     Route: 042
     Dates: start: 20111023, end: 20111025
  2. PLAVIX [Concomitant]

REACTIONS (1)
  - CEREBRAL HAEMORRHAGE [None]
